FAERS Safety Report 20329104 (Version 2)
Quarter: 2022Q1

REPORT INFORMATION
  Report Type: Spontaneous
  Country: FR (occurrence: FR)
  Receive Date: 20220112
  Receipt Date: 20220124
  Transmission Date: 20220423
  Serious: Yes (Hospitalization)
  Sender: FDA-Public Use
  Company Number: FR-CELGENE-FRA-20220102135

PATIENT
  Age: 83 Year
  Sex: Female
  Weight: 38 kg

DRUGS (1)
  1. VIDAZA [Suspect]
     Active Substance: AZACITIDINE
     Indication: Chronic myelomonocytic leukaemia
     Dosage: 315 MILLIGRAM (37.5 MG/M2 INTO 2 SYRINGE THAT IS 52.5 MG INTO 2 SYRINGE FROM D1-D7 OVER 28 DAY CYCLE
     Route: 058
     Dates: start: 20211213, end: 20211216

REACTIONS (1)
  - Eye haemorrhage [Not Recovered/Not Resolved]

NARRATIVE: CASE EVENT DATE: 20211215
